FAERS Safety Report 23003894 (Version 2)
Quarter: 2023Q4

REPORT INFORMATION
  Report Type: Spontaneous
  Country: GB (occurrence: GB)
  Receive Date: 20230928
  Receipt Date: 20231030
  Transmission Date: 20240110
  Serious: Yes (Other)
  Sender: FDA-Public Use
  Company Number: GB-ABBVIE-5426334

PATIENT
  Age: 57 Year
  Sex: Male
  Weight: 126 kg

DRUGS (6)
  1. SKYRIZI [Suspect]
     Active Substance: RISANKIZUMAB-RZAA
     Indication: Product used for unknown indication
     Route: 058
  2. BISOPROLOL [Concomitant]
     Active Substance: BISOPROLOL\BISOPROLOL FUMARATE
     Indication: Atrial fibrillation
     Dosage: 3.75MG (AT NIGHT)
  3. BISOPROLOL [Concomitant]
     Active Substance: BISOPROLOL\BISOPROLOL FUMARATE
     Indication: Atrial fibrillation
     Dosage: 2.5MG (IN MORNING)
  4. ENSTILAR [Concomitant]
     Active Substance: BETAMETHASONE DIPROPIONATE\CALCIPOTRIENE HYDRATE
     Indication: Psoriasis
  5. ELIQUIS [Concomitant]
     Active Substance: APIXABAN
     Indication: Atrial fibrillation
  6. THIAMINE [Concomitant]
     Active Substance: THIAMINE
     Indication: Alcohol use disorder
     Dosage: TIME INTERVAL: 0.33333333 DAYS

REACTIONS (4)
  - Retinal detachment [Unknown]
  - Visual impairment [Unknown]
  - Hallucination, visual [Unknown]
  - Charles Bonnet syndrome [Unknown]

NARRATIVE: CASE EVENT DATE: 20230101
